FAERS Safety Report 20668499 (Version 1)
Quarter: 2022Q2

REPORT INFORMATION
  Report Type: Spontaneous
  Country: US (occurrence: US)
  Receive Date: 20220404
  Receipt Date: 20220404
  Transmission Date: 20220721
  Serious: No
  Sender: FDA-Public Use
  Company Number: US-PFIZER INC-2021901165

PATIENT
  Age: 60 Year
  Sex: Male

DRUGS (1)
  1. IBRANCE [Suspect]
     Active Substance: PALBOCICLIB
     Dosage: 125 MG

REACTIONS (7)
  - Fatigue [Unknown]
  - Asthenia [Unknown]
  - Rash [Unknown]
  - Dyspnoea [Unknown]
  - Mobility decreased [Unknown]
  - Memory impairment [Unknown]
  - Condition aggravated [Unknown]
